FAERS Safety Report 25406544 (Version 5)
Quarter: 2025Q4

REPORT INFORMATION
  Report Type: Report from Study
  Country: US (occurrence: US)
  Receive Date: 20250606
  Receipt Date: 20251008
  Transmission Date: 20260118
  Serious: Yes (Other)
  Sender: MALLINCKRODT
  Company Number: US-MALLINCKRODT-MNK202503317

PATIENT
  Sex: Female

DRUGS (1)
  1. CORTICOTROPIN [Suspect]
     Active Substance: CORTICOTROPIN
     Indication: Parophthalmia
     Dosage: UNKNOWN

REACTIONS (10)
  - Anterior capsule opacification [Not Recovered/Not Resolved]
  - Loss of consciousness [Unknown]
  - Goitre [Unknown]
  - Facial paralysis [Recovered/Resolved]
  - Contusion [Unknown]
  - Fall [Unknown]
  - Eyelid ptosis [Unknown]
  - Injection site pain [Unknown]
  - Muscular weakness [Recovered/Resolved]
  - Headache [Not Recovered/Not Resolved]
